FAERS Safety Report 20524075 (Version 1)
Quarter: 2022Q1

REPORT INFORMATION
  Report Type: Report from Study
  Country: CA (occurrence: CA)
  Receive Date: 20220228
  Receipt Date: 20220228
  Transmission Date: 20220423
  Serious: Yes (Other)
  Sender: FDA-Public Use
  Company Number: CA-BAYER-2022A028232

PATIENT
  Age: 74 Year
  Sex: Female

DRUGS (3)
  1. RIVAROXABAN [Suspect]
     Active Substance: RIVAROXABAN
     Indication: Product used for unknown indication
     Route: 048
  2. CEPHALEXIN [Suspect]
     Active Substance: CEPHALEXIN
     Indication: Nail infection
     Dosage: UNK
     Route: 048
  3. RENFLEXIS [Suspect]
     Active Substance: INFLIXIMAB-ABDA
     Indication: Crohn^s disease
     Dosage: 600 MG, Q8WK
     Route: 065

REACTIONS (15)
  - Post procedural haemorrhage [Recovered/Resolved]
  - Hydronephrosis [Recovered/Resolved]
  - Renal neoplasm [Recovered/Resolved]
  - Loss of consciousness [Recovered/Resolved]
  - Urethral haemorrhage [Recovered/Resolved]
  - Nail infection [Recovered/Resolved]
  - Fungal infection [Recovered/Resolved]
  - Psoriasis [Recovered/Resolved]
  - White blood cells urine positive [Recovered/Resolved]
  - Tremor [Recovered/Resolved]
  - Vaginal haemorrhage [Recovered/Resolved]
  - Blood sodium decreased [Recovered/Resolved]
  - Vomiting [Recovered/Resolved]
  - Constipation [Recovered/Resolved]
  - Cold sweat [Recovered/Resolved]
